FAERS Safety Report 5345932-5 (Version None)
Quarter: 2007Q2

REPORT INFORMATION
  Report Type: 
  Country: None (occurrence: None)
  Receive Date: 20070605
  Receipt Date: 20070524
  Transmission Date: 20071010
  Serious: Yes (Hospitalization)
  Sender: FDA-Public Use
  Company Number: B0132664B

PATIENT
  Age: 28 Month
  Sex: Female

DRUGS (8)
  1. ZIDOVUDINE [Suspect]
     Indication: HUMAN IMMUNODEFICIENCY VIRUS TRANSMISSION
     Dates: start: 19971001, end: 19980101
  2. LAMIVUDINE [Suspect]
     Indication: HUMAN IMMUNODEFICIENCY VIRUS TRANSMISSION
     Dates: start: 19971101, end: 19980101
  3. SAQUINAVIR [Suspect]
     Indication: HUMAN IMMUNODEFICIENCY VIRUS TRANSMISSION
     Dosage: 600MG THREE TIMES PER DAY
     Dates: start: 19971101, end: 19980401
  4. RITONAVIR [Suspect]
     Indication: HUMAN IMMUNODEFICIENCY VIRUS TRANSMISSION
     Dates: start: 19971101, end: 19980401
  5. STAVUDINE [Suspect]
     Indication: HUMAN IMMUNODEFICIENCY VIRUS TRANSMISSION
     Dosage: 40MG TWICE PER DAY
     Dates: start: 19880114
  6. DIDANOSINE [Suspect]
     Indication: HUMAN IMMUNODEFICIENCY VIRUS TRANSMISSION
     Dosage: 300MG PER DAY
     Dates: start: 19980114
  7. LAMIVUDINE [Suspect]
     Route: 048
     Dates: start: 19980408, end: 19980520
  8. ZIDOVUDINE [Suspect]
     Route: 048
     Dates: start: 19980408, end: 19980525

REACTIONS (5)
  - ANAEMIA [None]
  - BRAIN STEM SYNDROME [None]
  - DRUG EXPOSURE DURING PREGNANCY [None]
  - NERVOUS SYSTEM DISORDER [None]
  - NUCLEAR MAGNETIC RESONANCE IMAGING ABNORMAL [None]
